FAERS Safety Report 10010577 (Version 1)
Quarter: 2014Q1

REPORT INFORMATION
  Report Type: Report from Study
  Country: US (occurrence: US)
  Receive Date: 20140314
  Receipt Date: 20140314
  Transmission Date: 20141002
  Serious: Yes (Hospitalization)
  Sender: FDA-Public Use
  Company Number: US-MERCK-1403USA004035

PATIENT
  Age: 75 Year
  Sex: Female
  Weight: 71.2 kg

DRUGS (17)
  1. MK-3475 [Suspect]
     Indication: NON-SMALL CELL LUNG CANCER
     Dosage: 10 MG/KG, Q2W
     Route: 042
     Dates: start: 20131226, end: 20140206
  2. ASPIRIN [Concomitant]
     Indication: CARDIOVASCULAR EVENT PROPHYLAXIS
     Dosage: 81 MG, DAILY
     Route: 048
     Dates: start: 2012
  3. DIAZEPAM [Concomitant]
     Indication: ANXIETY
     Dosage: 2 MG, DAILY
     Route: 048
     Dates: start: 20130117
  4. NEXIUM [Concomitant]
     Indication: GASTROOESOPHAGEAL REFLUX DISEASE
     Dosage: 40 MG, DAILY
     Route: 048
     Dates: start: 2010
  5. ZETIA [Concomitant]
     Indication: BLOOD CHOLESTEROL INCREASED
     Dosage: 10 MG, PRN
     Route: 048
     Dates: start: 2013
  6. ARICEPT [Concomitant]
     Indication: DEMENTIA
     Dosage: 10 MG, DAILY
     Route: 048
     Dates: start: 201009
  7. FLAXSEED [Concomitant]
     Indication: CARDIOVASCULAR EVENT PROPHYLAXIS
     Dosage: 1200 MG, DAILY
     Route: 048
     Dates: start: 2010
  8. FLUCONAZOLE [Concomitant]
     Indication: ORAL CANDIDIASIS
     Dosage: 100 MG, BID
     Route: 048
     Dates: start: 201401
  9. LEXAPRO [Concomitant]
     Indication: ANXIETY
     Dosage: 20 MG, DAILY
     Route: 048
     Dates: start: 2008
  10. MICONAZOLE [Concomitant]
     Indication: ORAL CANDIDIASIS
     Dosage: 50 MG, DAILY
     Route: 002
     Dates: start: 20140212
  11. NAPROXEN [Concomitant]
     Indication: PAIN
     Dosage: 375 MG, PRN
     Route: 048
     Dates: start: 2010
  12. NYSTATIN [Concomitant]
     Indication: CANDIDA INFECTION
     Dosage: 5 ML, TID
     Route: 048
     Dates: start: 201402
  13. RETINAVITES [Concomitant]
     Indication: VITAMIN SUPPLEMENTATION
     Dosage: UNK, BID
     Route: 048
     Dates: start: 200907
  14. SPIRIVA HANDIHALER [Concomitant]
     Indication: CHRONIC OBSTRUCTIVE PULMONARY DISEASE
     Dosage: 18 MICROGRAM, DAILY, ROUTE: INHALATION
     Route: 055
     Dates: start: 2010
  15. SPIRONOLACTONE [Concomitant]
     Indication: HYPERTENSION
     Dosage: 25 MG, DAILY
     Route: 048
     Dates: start: 2008
  16. SYMBICORT [Concomitant]
     Indication: CHRONIC OBSTRUCTIVE PULMONARY DISEASE
     Dosage: DOSE: 160-4.5, MCG, DAILY, ROUTE: INHALATION
     Route: 055
     Dates: start: 2009
  17. SYSTANE [Concomitant]
     Indication: DRY EYE
     Dosage: UNK, PRN, OPHTHALMIC SOLUTION
     Route: 047
     Dates: start: 200907

REACTIONS (1)
  - Fatigue [Not Recovered/Not Resolved]
